FAERS Safety Report 7297425-6 (Version None)
Quarter: 2011Q1

REPORT INFORMATION
  Report Type: 
  Country: None (occurrence: None)
  Receive Date: 20110216
  Receipt Date: 20110204
  Transmission Date: 20110831
  Serious: Yes (Hospitalization, Other)
  Sender: FDA-Public Use
  Company Number: CO-BAYER-2010-007615

PATIENT
  Sex: Male
  Weight: 60 kg

DRUGS (12)
  1. RIVAROXABAN [Interacting]
     Indication: ACUTE CORONARY SYNDROME
     Dosage: DOSAGE FORM: TABLET
     Route: 048
     Dates: start: 20100923, end: 20101213
  2. ACETYLSALICYLIC ACID SRT [Suspect]
     Indication: ACUTE CORONARY SYNDROME
  3. CLOPIDOGREL [Interacting]
     Indication: ACUTE CORONARY SYNDROME
  4. AMLODIPINE [Concomitant]
  5. IBUPROFEN [Concomitant]
     Dosage: DOSAGE FORM: UNSPECIFIED
  6. RIVAROXABAN [Interacting]
     Dosage: DOSAGE FORM: TABLET
     Route: 048
     Dates: start: 20100922, end: 20100922
  7. SODIUM BICARBONATE [Concomitant]
  8. VALSARTAN [Concomitant]
  9. OMEPRAZOLE [Concomitant]
  10. AMLODIPINE [Concomitant]
  11. ACETAMINOPHEN [Concomitant]
  12. ETIFOXINE [Concomitant]

REACTIONS (2)
  - BLOOD CREATININE INCREASED [None]
  - ANAEMIA [None]
